FAERS Safety Report 12259122 (Version 1)
Quarter: 2016Q2

REPORT INFORMATION
  Report Type: Spontaneous
  Country: US (occurrence: US)
  Receive Date: 20160412
  Receipt Date: 20160412
  Transmission Date: 20160815
  Serious: No
  Sender: FDA-Public Use
  Company Number: US-SA-2015SA065527

PATIENT

DRUGS (6)
  1. NASONEX [Suspect]
     Active Substance: MOMETASONE FUROATE
     Route: 065
  2. ZYRTEC [Suspect]
     Active Substance: CETIRIZINE HYDROCHLORIDE
     Route: 065
  3. CLARITIN [Suspect]
     Active Substance: LORATADINE
     Route: 065
  4. BENADRYL [Suspect]
     Active Substance: DIPHENHYDRAMINE HYDROCHLORIDE
     Route: 065
  5. ALLEGRA [Suspect]
     Active Substance: FEXOFENADINE HYDROCHLORIDE
     Route: 048
  6. DIPHENHYDRAMINE. [Suspect]
     Active Substance: DIPHENHYDRAMINE
     Route: 065

REACTIONS (1)
  - Drug ineffective [Unknown]
